FAERS Safety Report 11231217 (Version 1)
Quarter: 2015Q2

REPORT INFORMATION
  Report Type: Spontaneous
  Country: US (occurrence: None)
  Receive Date: 20150630
  Receipt Date: 20150630
  Transmission Date: 20150821
  Serious: No
  Sender: FDA-Public Use
  Company Number: None

PATIENT
  Age: 28 Year
  Sex: Female

DRUGS (1)
  1. STIVARGA [Suspect]
     Active Substance: REGORAFENIB
     Indication: RECTOSIGMOID CANCER
     Dosage: 160MG, DAILY 3WKS ON AND 1 WEED OFF
     Route: 048
     Dates: start: 20150527

REACTIONS (2)
  - Blister [None]
  - Pain [None]

NARRATIVE: CASE EVENT DATE: 20150629
